FAERS Safety Report 16351266 (Version 1)
Quarter: 2019Q2

REPORT INFORMATION
  Report Type: Spontaneous
  Country: US (occurrence: US)
  Receive Date: 20190417
  Receipt Date: 20190417
  Transmission Date: 20190711
  Serious: Yes (Hospitalization)
  Sender: FDA-Public Use
  Company Number: None

PATIENT
  Age: 53 Year
  Sex: Male
  Weight: 105.9 kg

DRUGS (8)
  1. ATORVASTATIN [Concomitant]
     Active Substance: ATORVASTATIN
  2. NUVIGIL [Suspect]
     Active Substance: ARMODAFINIL
     Dates: end: 20190322
  3. AMLODIPINE [Concomitant]
     Active Substance: AMLODIPINE BESYLATE
  4. LISINOPRIL. [Concomitant]
     Active Substance: LISINOPRIL
  5. PANTOPRAZOLE [Concomitant]
     Active Substance: PANTOPRAZOLE
  6. HYDROCHLOROTHIAZIDE. [Concomitant]
     Active Substance: HYDROCHLOROTHIAZIDE
  7. DISULFIRAM. [Concomitant]
     Active Substance: DISULFIRAM
  8. POTASSIUM CHLORIDE. [Concomitant]
     Active Substance: POTASSIUM CHLORIDE

REACTIONS (8)
  - Hemianaesthesia [None]
  - Aphasia [None]
  - Disease progression [None]
  - Deep vein thrombosis [None]
  - Brain scan abnormal [None]
  - Seizure [None]
  - Impaired self-care [None]
  - Dysarthria [None]

NARRATIVE: CASE EVENT DATE: 20190322
